FAERS Safety Report 8150312-3 (Version None)
Quarter: 2012Q1

REPORT INFORMATION
  Report Type: 
  Country: None (occurrence: None)
  Receive Date: 20120220
  Receipt Date: 20120213
  Transmission Date: 20120608
  Serious: Yes (Other)
  Sender: FDA-Public Use
  Company Number: US-BAYER-2011-015947

PATIENT
  Age: 23 Year
  Sex: Female

DRUGS (2)
  1. MIRENA [Suspect]
     Indication: CONTRACEPTION
     Dosage: DAILY DOSE 20 ?G/D
     Route: 015
     Dates: start: 20100923
  2. IBUPROFEN [Concomitant]

REACTIONS (8)
  - MENORRHAGIA [None]
  - ABDOMINAL PAIN [None]
  - VAGINITIS BACTERIAL [None]
  - OVARIAN CYST [None]
  - VAGINAL HAEMORRHAGE [None]
  - ECTOPIC PREGNANCY WITH INTRAUTERINE DEVICE [None]
  - PELVIC PAIN [None]
  - MEDICAL DEVICE SITE REACTION [None]
